FAERS Safety Report 7515311-0 (Version None)
Quarter: 2011Q2

REPORT INFORMATION
  Report Type: 
  Country: None (occurrence: None)
  Receive Date: 20110601
  Receipt Date: 20110523
  Transmission Date: 20111010
  Serious: Yes (Other)
  Sender: FDA-Public Use
  Company Number: US-ELI_LILLY_AND_COMPANY-US201105007498

PATIENT
  Sex: Male

DRUGS (2)
  1. EFFIENT [Suspect]
     Indication: STENT PLACEMENT
     Dosage: 10 MG, UNKNOWN
  2. ASPIRIN [Concomitant]

REACTIONS (1)
  - THROMBOSIS IN DEVICE [None]
